FAERS Safety Report 9413893 (Version 1)
Quarter: 2013Q3

REPORT INFORMATION
  Report Type: Spontaneous
  Country: US (occurrence: US)
  Receive Date: 20130723
  Receipt Date: 20130723
  Transmission Date: 20140515
  Serious: No
  Sender: FDA-Public Use
  Company Number: US-009507513-1307USA011147

PATIENT
  Age: 49 Year
  Sex: Male
  Weight: 86.17 kg

DRUGS (1)
  1. SAPHRIS [Suspect]
     Indication: DEPRESSION
     Dosage: 5 MG, QD
     Route: 060

REACTIONS (8)
  - Feeling abnormal [Unknown]
  - Off label use [Unknown]
  - Dysphemia [Unknown]
  - Feeling cold [Unknown]
  - Contusion [Unknown]
  - Feeling hot [Unknown]
  - Dysarthria [Unknown]
  - Headache [Unknown]
